FAERS Safety Report 20863043 (Version 4)
Quarter: 2022Q3

REPORT INFORMATION
  Report Type: Spontaneous
  Country: US (occurrence: US)
  Receive Date: 20220523
  Receipt Date: 20220628
  Transmission Date: 20221027
  Serious: Yes (Death, Other)
  Sender: FDA-Public Use
  Company Number: US-NOVARTISPH-NVSC2022US117721

PATIENT
  Age: 21 Year
  Sex: Male
  Weight: 76.4 kg

DRUGS (2)
  1. KYMRIAH [Suspect]
     Active Substance: TISAGENLECLEUCEL
     Indication: Diffuse large B-cell lymphoma
     Dosage: ONCE/SINGLE (1.6X10 ^8 CAR-POSITIVE VIABLE T CELLS)
     Route: 042
  2. KYMRIAH [Suspect]
     Active Substance: TISAGENLECLEUCEL
     Dosage: ONCE/SINGLE (3.1X10 ^8 CAR-POSITIVE VIABLE T CELLS)
     Route: 042
     Dates: start: 20220404

REACTIONS (8)
  - Infection [Fatal]
  - Abdominal abscess [Unknown]
  - Enterococcal infection [Unknown]
  - Pancytopenia [Unknown]
  - Neutropenia [Unknown]
  - Candida infection [Unknown]
  - Staphylococcal infection [Unknown]
  - Off label use [Unknown]

NARRATIVE: CASE EVENT DATE: 20220330
